FAERS Safety Report 8128105-2 (Version None)
Quarter: 2011Q4

REPORT INFORMATION
  Report Type: 
  Country: None (occurrence: None)
  Receive Date: 20111227
  Receipt Date: 20111108
  Transmission Date: 20120403
  Serious: No
  Sender: FDA-Public Use
  Company Number: PHEH2011US03007

PATIENT
  Age: 43 Year
  Sex: Female

DRUGS (2)
  1. VITAMIN B12 [Concomitant]
  2. GILENYA [Suspect]
     Indication: MULTIPLE SCLEROSIS
     Dosage: 0.5 MG, DAILY, ORAL
     Route: 048
     Dates: start: 20110829, end: 20111024

REACTIONS (8)
  - FEELING HOT [None]
  - CHEST PAIN [None]
  - TREMOR [None]
  - DYSPNOEA [None]
  - HEADACHE [None]
  - INFLUENZA LIKE ILLNESS [None]
  - CHILLS [None]
  - FLUSHING [None]
